FAERS Safety Report 19518274 (Version 1)
Quarter: 2021Q3

REPORT INFORMATION
  Report Type: Spontaneous
  Country: US (occurrence: US)
  Receive Date: 20210709
  Receipt Date: 20210709
  Transmission Date: 20211014
  Serious: Yes (Other)
  Sender: FDA-Public Use
  Company Number: None

PATIENT
  Age: 58 Year
  Sex: Female
  Weight: 139.95 kg

DRUGS (13)
  1. DURAPREP [Suspect]
     Active Substance: IODINE POVACRYLEX\ISOPROPYL ALCOHOL
     Indication: SURGERY
  2. SERTRALINE [Concomitant]
     Active Substance: SERTRALINE HYDROCHLORIDE
  3. MAGNESIUM GLYCINATE [Concomitant]
     Active Substance: MAGNESIUM GLYCINATE
  4. MULTIVITAMIN [Concomitant]
     Active Substance: VITAMINS
  5. SILICONE BREAST IMPLANTS FOR POST MASTECOMY [Concomitant]
  6. XARELTO [Concomitant]
     Active Substance: RIVAROXABAN
  7. BUPROPION. [Concomitant]
     Active Substance: BUPROPION
  8. VITAMIN D [Concomitant]
     Active Substance: VITAMIN D NOS
  9. RAMIPRIL. [Concomitant]
     Active Substance: RAMIPRIL
  10. COENZYME Q10 [Concomitant]
     Active Substance: DIETARY SUPPLEMENT\UBIDECARENONE
  11. LEVOTHYROXINE. [Concomitant]
     Active Substance: LEVOTHYROXINE
  12. SINGULAIR [Concomitant]
     Active Substance: MONTELUKAST SODIUM
  13. ZYRTEC [Concomitant]
     Active Substance: CETIRIZINE HYDROCHLORIDE

REACTIONS (2)
  - Hypersensitivity [None]
  - Dermatitis contact [None]

NARRATIVE: CASE EVENT DATE: 20210405
